FAERS Safety Report 9476388 (Version 2)
Quarter: 2013Q3

REPORT INFORMATION
  Report Type: Spontaneous
  Country: US (occurrence: US)
  Receive Date: 20130826
  Receipt Date: 20130826
  Transmission Date: 20140515
  Serious: Yes (Hospitalization)
  Sender: FDA-Public Use
  Company Number: US-SANOFI-AVENTIS-2013SA079745

PATIENT
  Age: 64 Year
  Sex: Female
  Weight: 88 kg

DRUGS (10)
  1. RIFAMPICIN [Suspect]
     Indication: INFECTION PROPHYLAXIS
     Dosage: 2 DOSES GIVEN THE NIGHT BEFORE AND 2 HOURS BEFORE SURGERY
     Route: 048
  2. PROPOFOL [Interacting]
     Indication: INDUCTION OF ANAESTHESIA
     Dosage: 2.3 MG/KG
     Route: 065
  3. MIDAZOLAM [Concomitant]
     Indication: ANXIETY
  4. FENTANYL [Concomitant]
     Indication: ANXIETY
     Dosage: -DOSE: 1.88 MCG/KG
     Route: 042
  5. SUCCINYLCHOLINE CHLORIDE [Concomitant]
     Indication: INDUCTION OF ANAESTHESIA
     Dosage: -DOSE: 1.1 MG/KG
  6. ATORVASTATIN [Concomitant]
  7. ESOMEPRAZOLE [Concomitant]
  8. NAPROXEN [Concomitant]
  9. HYDROCODONE BITARTRATE/PARACETAMOL [Concomitant]
     Indication: PAIN
     Dosage: -DOSE: 5-325 MG
  10. MULTIVITAMINS [Concomitant]
     Dosage: -OCCASIONALY

REACTIONS (2)
  - Hypotension [Recovered/Resolved]
  - Drug interaction [Unknown]
